FAERS Safety Report 5383331-0 (Version None)
Quarter: 2007Q3

REPORT INFORMATION
  Report Type: 
  Country: None (occurrence: None)
  Receive Date: 20070710
  Receipt Date: 20070628
  Transmission Date: 20080115
  Serious: Yes (Life-Threatening)
  Sender: FDA-Public Use
  Company Number: GB-PFIZER INC-2007054136

PATIENT
  Age: 62 Year
  Sex: Male

DRUGS (2)
  1. PHENYTOIN [Suspect]
  2. CARBAMAZEPINE [Suspect]

REACTIONS (10)
  - BACTERAEMIA [None]
  - DRUG ERUPTION [None]
  - DRUG RASH WITH EOSINOPHILIA AND SYSTEMIC SYMPTOMS [None]
  - DRY SKIN [None]
  - EOSINOPHILIA [None]
  - LYMPHADENOPATHY [None]
  - PYREXIA [None]
  - RASH MORBILLIFORM [None]
  - SWELLING FACE [None]
  - TRANSAMINASES ABNORMAL [None]
